FAERS Safety Report 14880710 (Version 1)
Quarter: 2018Q2

REPORT INFORMATION
  Report Type: Spontaneous
  Country: NL (occurrence: NL)
  Receive Date: 20180511
  Receipt Date: 20180511
  Transmission Date: 20180711
  Serious: Yes (Hospitalization, Other)
  Sender: FDA-Public Use
  Company Number: NL-AUROBINDO-AUR-APL-2018-024992

PATIENT

DRUGS (7)
  1. HYDROCORTISONE MICONAZOLE [Concomitant]
     Indication: PRODUCT USED FOR UNKNOWN INDICATION
     Dosage: UNK
     Route: 061
  2. PLANTAGO                           /00029101/ [Concomitant]
     Indication: PRODUCT USED FOR UNKNOWN INDICATION
     Dosage: 3D1T
     Route: 048
  3. HYDROCORTISONE MICONAZOLE [Concomitant]
     Dosage: ()
     Route: 050
  4. FERROUS FUMARATE [Concomitant]
     Active Substance: FERROUS FUMARATE
     Dosage: 1D1T
     Route: 050
  5. FERROUS FUMARATE [Concomitant]
     Active Substance: FERROUS FUMARATE
     Indication: PRODUCT USED FOR UNKNOWN INDICATION
     Dosage: 1D1T
     Route: 048
  6. PLANTAGO                           /00029101/ [Concomitant]
     Dosage: 3D1T
     Route: 050
  7. PAROXETIN FILM-COATED TABLET 30MG [Suspect]
     Active Substance: PAROXETINE
     Indication: DEPRESSION
     Dosage: 1D1T
     Route: 048
     Dates: start: 2017

REACTIONS (2)
  - Maternal drugs affecting foetus [None]
  - Tachycardia foetal [Unknown]
